FAERS Safety Report 8150388-3 (Version None)
Quarter: 2012Q1

REPORT INFORMATION
  Report Type: 
  Country: None (occurrence: None)
  Receive Date: 20120220
  Receipt Date: 20120213
  Transmission Date: 20120608
  Serious: Yes (Other)
  Sender: FDA-Public Use
  Company Number: US-BAYER-2011-068312

PATIENT
  Age: 19 Year
  Sex: Female
  Weight: 82 kg

DRUGS (8)
  1. PHENERGAN [Concomitant]
     Dosage: UNK UNK, PRN
     Route: 048
     Dates: start: 20100119
  2. PENICILLIN VK [Concomitant]
     Dosage: 500 MG, QID
     Dates: start: 20091219
  3. HYDROCODONE [Concomitant]
     Indication: PAIN
     Dosage: UNK UNK, PRN EVERY 6 HOURS
     Route: 048
     Dates: start: 20091219, end: 20100103
  4. MONONESSA-28 [Concomitant]
     Dosage: UNK
     Dates: start: 20090701, end: 20090901
  5. TRINESSA-28 [Concomitant]
  6. DEPO-PROVERA [Concomitant]
  7. YAZ [Suspect]
     Indication: CONTRACEPTION
     Dosage: UNK
     Dates: start: 20080701, end: 20090501
  8. SPRINTEC [Concomitant]
     Dosage: UNK
     Dates: start: 20090701, end: 20090901

REACTIONS (2)
  - CHOLECYSTITIS [None]
  - GALLBLADDER DISORDER [None]
